FAERS Safety Report 5656012-3 (Version None)
Quarter: 2008Q1

REPORT INFORMATION
  Report Type: 
  Country: None (occurrence: None)
  Receive Date: 20080307
  Receipt Date: 20080225
  Transmission Date: 20080703
  Serious: Yes (Hospitalization, Other)
  Sender: FDA-Public Use
  Company Number: AU-PFIZER INC-2008018602

PATIENT
  Age: 40 Year
  Sex: Male

DRUGS (2)
  1. CHANTIX [Suspect]
  2. QUININE [Suspect]
     Indication: LICE INFESTATION

REACTIONS (6)
  - BLOOD URINE PRESENT [None]
  - HAEMORRHAGE [None]
  - LIP ULCERATION [None]
  - PLATELET COUNT DECREASED [None]
  - RENAL HAEMATOMA [None]
  - TONGUE ULCERATION [None]
